FAERS Safety Report 4815399-1 (Version None)
Quarter: 2005Q4

REPORT INFORMATION
  Report Type: 
  Country: None (occurrence: None)
  Receive Date: 20051027
  Receipt Date: 20051020
  Transmission Date: 20060501
  Serious: Yes (Disabling, Other)
  Sender: FDA-Public Use
  Company Number: 2005120778

PATIENT
  Sex: Female

DRUGS (1)
  1. LIPITOR [Suspect]
     Indication: ILL-DEFINED DISORDER
     Dosage: 40 MG (1 IN 1 D)

REACTIONS (5)
  - BLOOD PRESSURE DECREASED [None]
  - ECONOMIC PROBLEM [None]
  - KNEE OPERATION [None]
  - THERAPEUTIC RESPONSE UNEXPECTED [None]
  - TREATMENT NONCOMPLIANCE [None]
